FAERS Safety Report 20176547 (Version 2)
Quarter: 2021Q4

REPORT INFORMATION
  Report Type: Spontaneous
  Country: US (occurrence: US)
  Receive Date: 20211213
  Receipt Date: 20211230
  Transmission Date: 20220303
  Serious: No
  Sender: FDA-Public Use
  Company Number: US-LUPIN PHARMACEUTICALS INC.-2021-24122

PATIENT
  Sex: Female

DRUGS (1)
  1. ALBUTEROL SULFATE [Suspect]
     Active Substance: ALBUTEROL SULFATE
     Indication: Chronic obstructive pulmonary disease
     Dosage: UNK, BID  (2 PUFFS 2 X PER DAY)

REACTIONS (4)
  - Device delivery system issue [Unknown]
  - Product taste abnormal [Unknown]
  - Drug dose omission by device [Unknown]
  - No adverse event [Unknown]
